FAERS Safety Report 23970618 (Version 1)
Quarter: 2024Q2

REPORT INFORMATION
  Report Type: Spontaneous
  Country: CN (occurrence: CN)
  Receive Date: 20240613
  Receipt Date: 20240613
  Transmission Date: 20240716
  Serious: Yes (Hospitalization, Other)
  Sender: FDA-Public Use
  Company Number: None

PATIENT
  Age: 6 Year
  Sex: Male
  Weight: 22.5 kg

DRUGS (5)
  1. CYCLOPHOSPHAMIDE [Suspect]
     Active Substance: CYCLOPHOSPHAMIDE
     Indication: Acute lymphocytic leukaemia
     Dosage: 0.85 G ONE TIME IN ONE DAY,DILUTED WITH GNS 250ML, AS PART OF CAM REGIMEN CHEMOTHERAPY
     Route: 041
     Dates: start: 20240315, end: 20240315
  2. DEXTROSE\SODIUM CHLORIDE [Suspect]
     Active Substance: DEXTROSE\SODIUM CHLORIDE
     Indication: Medication dilution
     Dosage: (4:1) 250 ML ONE TIME IN ONE DAY USED TO DILUTE CYCLOPHOSPHAMIDE 0.85G
     Route: 041
     Dates: start: 20240315, end: 20240315
  3. DEXTROSE\SODIUM CHLORIDE [Suspect]
     Active Substance: DEXTROSE\SODIUM CHLORIDE
     Dosage: (4:1) 100 ML USED TO DILUTE CYTARABINE 0.85G EVERY 12 HR (D1-D2)
     Route: 041
     Dates: start: 20240315, end: 20240317
  4. MERCAPTOPURINE [Suspect]
     Active Substance: MERCAPTOPURINE
     Indication: Acute lymphocytic leukaemia
     Dosage: 42 MG, ONE TIME IN ONE DAY, AS PART OF CAM REGIMEN CHEMOTHERAPY (D1-D7)
     Route: 048
     Dates: start: 20240315, end: 20240321
  5. CYTARABINE [Suspect]
     Active Substance: CYTARABINE
     Indication: Acute lymphocytic leukaemia
     Dosage: 0.85 G, EVERY 12 HR, DILUTED WITH GNS 100ML, AS PART OF CAM REGIMEN CHEMOTHERAPY (D1-D3)
     Route: 041
     Dates: start: 20240315, end: 20240317

REACTIONS (1)
  - Myelosuppression [Recovering/Resolving]

NARRATIVE: CASE EVENT DATE: 20240324
